FAERS Safety Report 16366847 (Version 1)
Quarter: 2019Q2

REPORT INFORMATION
  Report Type: Spontaneous
  Country: US (occurrence: US)
  Receive Date: 20190529
  Receipt Date: 20190529
  Transmission Date: 20190711
  Serious: No
  Sender: FDA-Public Use
  Company Number: US-SA-2019SA141336

PATIENT
  Sex: Female
  Weight: 56.7 kg

DRUGS (1)
  1. DUPIXENT [Suspect]
     Active Substance: DUPILUMAB
     Indication: DERMATITIS ATOPIC
     Dosage: 300 MG, QOW
     Route: 058
     Dates: start: 201903

REACTIONS (6)
  - Eyelid pain [Unknown]
  - Facial pain [Unknown]
  - Rash macular [Unknown]
  - Eye pain [Unknown]
  - Mouth ulceration [Unknown]
  - Blepharitis [Unknown]
